FAERS Safety Report 7210348-3 (Version None)
Quarter: 2011Q1

REPORT INFORMATION
  Report Type: 
  Country: None (occurrence: None)
  Receive Date: 20110105
  Receipt Date: 20101224
  Transmission Date: 20110831
  Serious: Yes (Hospitalization)
  Sender: FDA-Public Use
  Company Number: FR-KINGPHARMUSA00001-K201001088

PATIENT
  Age: 60 Year
  Sex: Male

DRUGS (7)
  1. LITHIUM [Suspect]
     Indication: SCHIZOAFFECTIVE DISORDER
     Dosage: 295 MG, QD
     Route: 048
     Dates: start: 20080101, end: 20100701
  2. BELOC-ZOK [Concomitant]
     Dosage: UNK
     Dates: start: 20050101
  3. METFORMIN [Concomitant]
     Dosage: UNK
     Dates: start: 20060101, end: 20100718
  4. ALTACE [Suspect]
     Dosage: 2.5 MG, QD
     Route: 048
     Dates: start: 20100729
  5. ALTACE [Suspect]
     Indication: HYPERTENSION
     Dosage: 2.5 MG, BID
     Route: 048
     Dates: start: 20050101, end: 20100722
  6. LITHIUM CARBONATE [Suspect]
     Indication: SCHIZOAFFECTIVE DISORDER
     Dosage: 450 MG, QD
     Route: 048
     Dates: start: 20080101, end: 20100701
  7. ULTRAVIST 150 [Suspect]
     Dosage: 250 MG, SINGLE
     Dates: start: 20100713, end: 20100713

REACTIONS (8)
  - DRUG CLEARANCE DECREASED [None]
  - RENAL FAILURE ACUTE [None]
  - BALANCE DISORDER [None]
  - FALL [None]
  - DRUG INTERACTION [None]
  - BLOOD CREATINE INCREASED [None]
  - ABDOMINAL DISCOMFORT [None]
  - TOXICITY TO VARIOUS AGENTS [None]
